FAERS Safety Report 12355069 (Version 1)
Quarter: 2016Q2

REPORT INFORMATION
  Report Type: Spontaneous
  Country: US (occurrence: None)
  Receive Date: 20160510
  Receipt Date: 20160510
  Transmission Date: 20160815
  Serious: Yes (Disabling)
  Sender: FDA-Public Use
  Company Number: None

PATIENT
  Age: 59 Year
  Sex: Female
  Weight: 86.18 kg

DRUGS (12)
  1. LEVAQUIN [Suspect]
     Active Substance: LEVOFLOXACIN
     Indication: SINUSITIS
     Route: 048
     Dates: start: 20160323, end: 20160403
  2. PREGABALIN. [Concomitant]
     Active Substance: PREGABALIN
  3. FLAX OIL [Concomitant]
  4. LEVAQUIN [Suspect]
     Active Substance: LEVOFLOXACIN
     Indication: POST PROCEDURAL INFECTION
     Route: 048
     Dates: start: 20160323, end: 20160403
  5. LEVOTHYROXINE. [Concomitant]
     Active Substance: LEVOTHYROXINE
  6. DILITIAZEM [Concomitant]
     Active Substance: DILTIAZEM
  7. FISH OIL [Concomitant]
     Active Substance: FISH OIL
  8. VITAMIN C [Concomitant]
     Active Substance: ASCORBIC ACID
  9. ADVAIR HFA [Concomitant]
     Active Substance: FLUTICASONE PROPIONATE\SALMETEROL XINAFOATE
  10. RED YEAST RICE [Concomitant]
     Active Substance: DIETARY SUPPLEMENT
  11. VITAMIN B [Concomitant]
     Active Substance: VITAMIN B
  12. VITAMIN D [Concomitant]
     Active Substance: CHOLECALCIFEROL

REACTIONS (6)
  - Tendon rupture [None]
  - Joint range of motion decreased [None]
  - Pain [None]
  - Joint swelling [None]
  - Meniscus injury [None]
  - Arthralgia [None]

NARRATIVE: CASE EVENT DATE: 20160403
